FAERS Safety Report 7311366-7 (Version None)
Quarter: 2011Q1

REPORT INFORMATION
  Report Type: 
  Country: None (occurrence: None)
  Receive Date: 20110224
  Receipt Date: 20110223
  Transmission Date: 20110831
  Serious: Yes (Other)
  Sender: FDA-Public Use
  Company Number: US-PERRIGO-11US000482

PATIENT
  Sex: Female
  Weight: 49.887 kg

DRUGS (1)
  1. NICOTINE POLACRILEX 4MG MINT 422 [Suspect]
     Indication: SMOKING CESSATION THERAPY
     Dosage: 4 MG, SINGLE
     Route: 002
     Dates: start: 20110119, end: 20110119

REACTIONS (2)
  - VOMITING [None]
  - NAUSEA [None]
